FAERS Safety Report 7308684-5 (Version None)
Quarter: 2011Q1

REPORT INFORMATION
  Report Type: 
  Country: None (occurrence: None)
  Receive Date: 20110211
  Receipt Date: 20110131
  Transmission Date: 20110831
  Serious: Yes (Other)
  Sender: FDA-Public Use
  Company Number: WAES 1101USA03622

PATIENT
  Age: 59 Year
  Sex: Female
  Weight: 108.8633 kg

DRUGS (2)
  1. CADUET [Suspect]
     Indication: BLOOD CHOLESTEROL INCREASED
     Dosage: /PO
     Route: 048
     Dates: start: 20020101
  2. ZETIA [Suspect]
     Indication: BLOOD CHOLESTEROL
     Dosage: /PO
     Route: 048
     Dates: start: 20060101

REACTIONS (12)
  - MYOCARDIAL INFARCTION [None]
  - MALAISE [None]
  - ANXIETY [None]
  - GASTROOESOPHAGEAL REFLUX DISEASE [None]
  - COUGH [None]
  - LARYNGEAL OEDEMA [None]
  - OESOPHAGEAL SPASM [None]
  - UNEVALUABLE EVENT [None]
  - HYPERSENSITIVITY [None]
  - DYSPHONIA [None]
  - DIZZINESS [None]
  - THYROID DISORDER [None]
